FAERS Safety Report 25709146 (Version 2)
Quarter: 2025Q3

REPORT INFORMATION
  Report Type: Spontaneous
  Country: US (occurrence: US)
  Receive Date: 20250821
  Receipt Date: 20250902
  Transmission Date: 20251021
  Serious: Yes (Life-Threatening, Hospitalization)
  Sender: TEVA
  Company Number: US-TEVA-VS-3362599

PATIENT
  Age: 74 Year
  Sex: Female

DRUGS (3)
  1. EPINEPHRINE [Suspect]
     Active Substance: EPINEPHRINE
     Indication: Angioedema
     Route: 065
  2. HYDRALAZINE [Suspect]
     Active Substance: HYDRALAZINE HYDROCHLORIDE
     Indication: Product used for unknown indication
     Route: 065
  3. DEVICE [Suspect]
     Active Substance: DEVICE

REACTIONS (6)
  - Lupus-like syndrome [Recovered/Resolved]
  - Acute febrile neutrophilic dermatosis [Recovered/Resolved]
  - Dermatitis bullous [Recovered/Resolved]
  - Drug ineffective [Unknown]
  - Toxic encephalopathy [Recovered/Resolved]
  - Angioedema [Recovered/Resolved]
